FAERS Safety Report 21891522 (Version 3)
Quarter: 2023Q1

REPORT INFORMATION
  Report Type: Spontaneous
  Country: JP (occurrence: JP)
  Receive Date: 20230120
  Receipt Date: 20230325
  Transmission Date: 20230417
  Serious: Yes (Hospitalization)
  Sender: FDA-Public Use
  Company Number: JP-TAIHO-2022-002964

PATIENT
  Age: 76 Year
  Sex: Female
  Weight: 58.5 kg

DRUGS (6)
  1. LONSURF [Suspect]
     Active Substance: TIPIRACIL HYDROCHLORIDE\TRIFLURIDINE
     Indication: Gastric cancer stage III
     Dosage: CURRENT CYCLE UNKNOWN
     Route: 048
     Dates: start: 20200623, end: 20200701
  2. MAGNESIUM OXIDE [Concomitant]
     Active Substance: MAGNESIUM OXIDE
     Indication: Product used for unknown indication
     Dosage: 3 TABLETS?DAILY DOSE: 990 MILLIGRAM(S)
     Route: 048
  3. MIYA-BM [Concomitant]
     Active Substance: CLOSTRIDIUM BUTYRICUM SPORES STRAIN M-55
     Indication: Product used for unknown indication
     Dosage: 3 TABLETS
     Route: 048
  4. NORVASC [Concomitant]
     Active Substance: AMLODIPINE BESYLATE
     Indication: Product used for unknown indication
     Dosage: 1 TABLET?DAILY DOSE: 5 MILLIGRAM(S)
  5. FUROSEMIDE [Concomitant]
     Active Substance: FUROSEMIDE
     Indication: Product used for unknown indication
     Dosage: 2 TABLETS?DAILY DOSE: 40 MILLIGRAM(S)
     Route: 048
  6. SPIRONOLACTONE [Concomitant]
     Active Substance: SPIRONOLACTONE
     Indication: Product used for unknown indication
     Dosage: 1 TABLET?DAILY DOSE: 25 MILLIGRAM(S)
     Route: 048

REACTIONS (4)
  - Stomatitis [Recovering/Resolving]
  - Performance status decreased [Recovering/Resolving]
  - Diarrhoea [Recovering/Resolving]
  - Disease progression [Unknown]

NARRATIVE: CASE EVENT DATE: 20200629
